FAERS Safety Report 16723955 (Version 3)
Quarter: 2019Q3

REPORT INFORMATION
  Report Type: Report from Study
  Country: BR (occurrence: BR)
  Receive Date: 20190821
  Receipt Date: 20190911
  Transmission Date: 20191005
  Serious: Yes (Other)
  Sender: FDA-Public Use
  Company Number: PHHY2019BR019111

PATIENT
  Age: 27 Year
  Sex: Female
  Weight: 54 kg

DRUGS (2)
  1. GILENYA [Suspect]
     Active Substance: FINGOLIMOD HYDROCHLORIDE
     Dosage: UNK
     Route: 065
     Dates: start: 20190725, end: 20190820
  2. GILENYA [Suspect]
     Active Substance: FINGOLIMOD HYDROCHLORIDE
     Indication: RELAPSING-REMITTING MULTIPLE SCLEROSIS
     Dosage: 0.5 MG, QD
     Route: 048
     Dates: start: 20181128

REACTIONS (13)
  - Precancerous skin lesion [Unknown]
  - Hypercalcaemia [Unknown]
  - Drug ineffective [Unknown]
  - Multiple sclerosis [Unknown]
  - Cervical dysplasia [Unknown]
  - Mobility decreased [Recovered/Resolved]
  - Herpes simplex [Recovered/Resolved]
  - Vaginal dysplasia [Unknown]
  - Vision blurred [Recovered/Resolved]
  - Weight decreased [Not Recovered/Not Resolved]
  - Hand deformity [Unknown]
  - Gait disturbance [Unknown]
  - Lymphocyte count decreased [Unknown]

NARRATIVE: CASE EVENT DATE: 201812
